FAERS Safety Report 4910096-6 (Version None)
Quarter: 2006Q1

REPORT INFORMATION
  Report Type: 
  Country: None (occurrence: None)
  Receive Date: 20060209
  Receipt Date: 20060131
  Transmission Date: 20060701
  Serious: Yes (Hospitalization)
  Sender: FDA-Public Use
  Company Number: US-2005-024458

PATIENT
  Age: 33 Year
  Sex: Female
  Weight: 54.4 kg

DRUGS (1)
  1. YASMIN [Suspect]
     Indication: DYSMENORRHOEA
     Dosage: 1 TAB(S), 1X/DAY, ORAL
     Route: 048
     Dates: start: 20020101, end: 20050801

REACTIONS (3)
  - DYSPNOEA [None]
  - LIBIDO DECREASED [None]
  - PALPITATIONS [None]
